FAERS Safety Report 21099436 (Version 3)
Quarter: 2022Q3

REPORT INFORMATION
  Report Type: Spontaneous
  Country: BE (occurrence: BE)
  Receive Date: 20220719
  Receipt Date: 20220802
  Transmission Date: 20221026
  Serious: Yes (Disabling)
  Sender: FDA-Public Use
  Company Number: None

PATIENT
  Age: 50 Year
  Sex: Female

DRUGS (6)
  1. SERTRALINE HYDROCHLORIDE [Suspect]
     Active Substance: SERTRALINE HYDROCHLORIDE
     Dosage: 150 MG, 1X/DAY (100 MG 1X PLUS 50 MG 1X A DAY)
  2. XANAX [Suspect]
     Active Substance: ALPRAZOLAM
     Dosage: 1 MG, 2X/DAY
  3. HERBALS\LAVANDULA ANGUSTIFOLIA WHOLE [Suspect]
     Active Substance: HERBALS\LAVANDULA ANGUSTIFOLIA WHOLE
     Indication: Anxiety
     Dosage: 80 MG
     Route: 048
     Dates: start: 20220221, end: 20220621
  4. TEGRETOL [Suspect]
     Active Substance: CARBAMAZEPINE
     Dosage: 600 MG, 1X/DAY (400 AND 200 MG, 1X PER DAY EACH)
  5. INVEGA [Suspect]
     Active Substance: PALIPERIDONE
     Dosage: 1 DF, 1X/DAY
  6. PANTOPRAZOLE SODIUM [Concomitant]
     Active Substance: PANTOPRAZOLE SODIUM
     Dosage: 40 MG

REACTIONS (1)
  - Urinary incontinence [Recovered/Resolved]
